FAERS Safety Report 7157315-6 (Version None)
Quarter: 2010Q4

REPORT INFORMATION
  Report Type: 
  Country: None (occurrence: None)
  Receive Date: 20101214
  Receipt Date: 20101202
  Transmission Date: 20110411
  Serious: Yes (Other)
  Sender: FDA-Public Use
  Company Number: US-PFIZER INC-2010163127

PATIENT
  Sex: Female
  Weight: 99.773 kg

DRUGS (3)
  1. PRISTIQ [Suspect]
     Indication: DEPRESSION
     Dosage: 50 MG, DAILY
     Route: 048
     Dates: start: 20091201
  2. TOPROL-XL [Concomitant]
     Indication: HYPERTENSION
     Dosage: UNK
  3. PROMETRIUM [Concomitant]
     Dosage: UNK

REACTIONS (5)
  - ABDOMINAL PAIN [None]
  - DEPRESSION [None]
  - DIARRHOEA [None]
  - DRUG INEFFECTIVE [None]
  - NAUSEA [None]
